FAERS Safety Report 18521955 (Version 1)
Quarter: 2020Q4

REPORT INFORMATION
  Report Type: Spontaneous
  Country: IT (occurrence: IT)
  Receive Date: 20201119
  Receipt Date: 20201119
  Transmission Date: 20210114
  Serious: Yes (Other)
  Sender: FDA-Public Use
  Company Number: IT-SUN PHARMACEUTICAL INDUSTRIES LTD-2020RR-268369

PATIENT
  Age: 61 Year
  Sex: Female

DRUGS (4)
  1. LORAZEPAM. [Suspect]
     Active Substance: LORAZEPAM
     Indication: PERSONALITY DISORDER
     Dosage: 20 MILLIGRAM, IN TOTAL
     Route: 048
     Dates: start: 20180406, end: 20180406
  2. XANAX [Suspect]
     Active Substance: ALPRAZOLAM
     Indication: PERSONALITY DISORDER
     Dosage: 11 DOSAGE FORM, IN TOTAL
     Route: 048
     Dates: start: 20180406, end: 20180406
  3. LYRICA [Concomitant]
     Active Substance: PREGABALIN
     Indication: PERSONALITY DISORDER
     Dosage: 50 MILLIGRAM, UNK
     Route: 048
  4. CYMBALTA [Concomitant]
     Active Substance: DULOXETINE HYDROCHLORIDE
     Indication: PERSONALITY DISORDER
     Dosage: 1 DOSAGE FORM, UNK
     Route: 048

REACTIONS (5)
  - Loss of consciousness [Recovering/Resolving]
  - Fall [Recovering/Resolving]
  - Sopor [Recovering/Resolving]
  - Alcohol abuse [Recovering/Resolving]
  - Drug abuse [Recovering/Resolving]

NARRATIVE: CASE EVENT DATE: 20180406
